FAERS Safety Report 7731437-0 (Version None)
Quarter: 2011Q3

REPORT INFORMATION
  Report Type: 
  Country: None (occurrence: None)
  Receive Date: 20110906
  Receipt Date: 20110824
  Transmission Date: 20111222
  Serious: No
  Sender: FDA-Public Use
  Company Number: US-B.I. PHARMACEUTICALS,INC./RIDGEFIELD-2011-BP-20728BP

PATIENT
  Sex: Female

DRUGS (5)
  1. LANOXIN [Concomitant]
     Indication: ATRIAL FIBRILLATION
     Route: 048
  2. GABAPENTIN [Concomitant]
     Indication: NEURALGIA
     Route: 048
  3. PRAVASTATIN [Concomitant]
     Indication: BLOOD CHOLESTEROL INCREASED
     Route: 048
  4. DILTIAZEM [Concomitant]
     Indication: HYPERTENSION
     Route: 048
  5. PRADAXA [Suspect]
     Indication: ATRIAL FIBRILLATION
     Dosage: 300 MG
     Route: 048
     Dates: start: 20110501

REACTIONS (2)
  - DYSPEPSIA [None]
  - CHEST PAIN [None]
